FAERS Safety Report 11830636 (Version 4)
Quarter: 2016Q1

REPORT INFORMATION
  Report Type: Report from Study
  Country: CA (occurrence: CA)
  Receive Date: 20151214
  Receipt Date: 20160226
  Transmission Date: 20160525
  Serious: Yes (Other)
  Sender: FDA-Public Use
  Company Number: CA-ROCHE-1299010

PATIENT
  Age: 65 Year
  Sex: Female
  Weight: 81.6 kg

DRUGS (7)
  1. ACETAMINOPHEN. [Concomitant]
     Active Substance: ACETAMINOPHEN
     Indication: PREMEDICATION
     Route: 048
     Dates: start: 20111109
  2. ANASTROZOLE. [Concomitant]
     Active Substance: ANASTROZOLE
  3. METHOTREXATE [Concomitant]
     Active Substance: METHOTREXATE
  4. PARIET [Concomitant]
     Active Substance: RABEPRAZOLE SODIUM
  5. RITUXAN [Suspect]
     Active Substance: RITUXIMAB
     Indication: RHEUMATOID ARTHRITIS
     Dosage: DAY 1 AND 15, LAST RITUXAN INFUSION WAS RECIEVED ON 19/DEC/2013.
     Route: 042
     Dates: start: 20111109
  6. DIPHENHYDRAMINE HCL [Concomitant]
     Active Substance: DIPHENHYDRAMINE HYDROCHLORIDE
     Indication: PREMEDICATION
     Route: 048
     Dates: start: 20111109
  7. PREDNISONE. [Concomitant]
     Active Substance: PREDNISONE
     Indication: PREMEDICATION
     Route: 048
     Dates: start: 20111109

REACTIONS (4)
  - Breast cancer [Not Recovered/Not Resolved]
  - Blood triglycerides increased [Unknown]
  - Rheumatoid arthritis [Unknown]
  - Pneumonia [Recovered/Resolved]

NARRATIVE: CASE EVENT DATE: 201310
